FAERS Safety Report 9553769 (Version 2)
Quarter: 2014Q1

REPORT INFORMATION
  Report Type: Spontaneous
  Country: GB (occurrence: GB)
  Receive Date: 20130925
  Receipt Date: 20140116
  Transmission Date: 20141002
  Serious: Yes (Hospitalization)
  Sender: FDA-Public Use
  Company Number: PHFR2013GB005324

PATIENT
  Sex: 0

DRUGS (4)
  1. CLOZAPINE [Suspect]
     Indication: SCHIZOPHRENIA
     Dosage: 650 MG, DAILY (300MG IN THE MORNING, 350MG AT NIGHT)
     Route: 048
  2. NIFEDIPRESS [Concomitant]
     Dosage: UNK
  3. OMEPRAZOLE [Concomitant]
     Dosage: UNK
  4. CO-CODAMOL [Concomitant]
     Dosage: UNK

REACTIONS (6)
  - Mass [Unknown]
  - Condition aggravated [Unknown]
  - Abdominal pain [Unknown]
  - Weight decreased [Unknown]
  - Small intestinal obstruction [Unknown]
  - Faecaloma [Unknown]
